FAERS Safety Report 14935101 (Version 1)
Quarter: 2018Q2

REPORT INFORMATION
  Report Type: Spontaneous
  Country: US (occurrence: US)
  Receive Date: 20180524
  Receipt Date: 20180524
  Transmission Date: 20180711
  Serious: Yes (Death, Life-Threatening)
  Sender: FDA-Public Use
  Company Number: US-SEBELA IRELAND LIMITED-2018SEB00134

PATIENT
  Sex: Female

DRUGS (1)
  1. LABETALOL HYDROCHLORIDE. [Suspect]
     Active Substance: LABETALOL HYDROCHLORIDE
     Indication: PRE-ECLAMPSIA
     Route: 042

REACTIONS (8)
  - Exposure during pregnancy [Fatal]
  - Pulse absent [Fatal]
  - Bronchospasm [Fatal]
  - Caesarean section [Fatal]
  - Blood pressure immeasurable [Fatal]
  - Respiratory distress [Fatal]
  - Hypoxia [Fatal]
  - Brain death [Fatal]
